FAERS Safety Report 4294009-9 (Version None)
Quarter: 2004Q1

REPORT INFORMATION
  Report Type: 
  Country: None (occurrence: None)
  Receive Date: 20040211
  Receipt Date: 20040122
  Transmission Date: 20041129
  Serious: Yes (Death)
  Sender: FDA-Public Use
  Company Number: GBS040114326

PATIENT
  Age: 40 Year
  Sex: Male
  Weight: 82 kg

DRUGS (3)
  1. HUMALOG [Suspect]
     Indication: DIABETES MELLITUS
     Dates: start: 20010321, end: 20010418
  2. INSULIN [Concomitant]
  3. HUMAN MIXTARD 30 [Concomitant]

REACTIONS (1)
  - DEATH [None]
